FAERS Safety Report 17192086 (Version 2)
Quarter: 2021Q1

REPORT INFORMATION
  Report Type: Report from Study
  Country: CA (occurrence: CA)
  Receive Date: 20191223
  Receipt Date: 20210302
  Transmission Date: 20210419
  Serious: Yes (Death, Hospitalization, Other)
  Sender: FDA-Public Use
  Company Number: CA-PFIZER INC-2019547887

PATIENT
  Age: 55 Year
  Sex: Male
  Weight: 100 kg

DRUGS (16)
  1. AMLODIPINE BESILATE [Suspect]
     Active Substance: AMLODIPINE BESYLATE
     Indication: BLOOD PRESSURE ABNORMAL
     Dosage: 10 MG, 1X/DAY
     Route: 065
  2. MORPHINE SULFATE. [Suspect]
     Active Substance: MORPHINE SULFATE
     Dosage: UNK
     Route: 065
  3. AMLODIPINE BESILATE [Suspect]
     Active Substance: AMLODIPINE BESYLATE
     Dosage: 5 MG
  4. SANDOSTATIN [Suspect]
     Active Substance: OCTREOTIDE ACETATE
     Dosage: 40 MG, MONTHLY
     Route: 030
  5. ALTACE [Concomitant]
     Active Substance: RAMIPRIL
     Dosage: UNK, 1X/DAY
     Route: 065
  6. ASA [Concomitant]
     Active Substance: ASPIRIN
     Dosage: 81 MG, 1X/DAY
     Route: 048
  7. SANDOSTATIN [Suspect]
     Active Substance: OCTREOTIDE ACETATE
     Indication: CARCINOID TUMOUR
     Dosage: 30 MG, MONTHLY
     Route: 030
  8. ROSUVASTATIN CALCIUM. [Concomitant]
     Active Substance: ROSUVASTATIN CALCIUM
     Dosage: UNK, 1X/DAY
     Route: 065
  9. AMLODIPINE BESILATE [Suspect]
     Active Substance: AMLODIPINE BESYLATE
     Indication: BLOOD PRESSURE ABNORMAL
     Dosage: 10 MG, 1X/DAY
     Route: 065
  10. SANDOSTATIN [Suspect]
     Active Substance: OCTREOTIDE ACETATE
     Dosage: 30 MG (1 EVERY 4 WEEKS)
     Route: 030
  11. SANDOSTATIN LAR DEPOT [Suspect]
     Active Substance: OCTREOTIDE ACETATE
     Indication: CARCINOID TUMOUR
     Dosage: 30 MG, 1 EVERY 1 MONTH
     Route: 030
  12. LANTUS [Concomitant]
     Active Substance: INSULIN GLARGINE
     Dosage: UNK, 1X/DAY
     Route: 065
  13. ACETYLSALICYLIC ACID [Concomitant]
     Active Substance: ASPIRIN
     Indication: PROPHYLAXIS
     Dosage: UNK
     Route: 048
  14. SANDOSTATIN [Suspect]
     Active Substance: OCTREOTIDE ACETATE
     Dosage: 30 MG, MONTHLY
     Route: 030
  15. KETOROLAC TROMETHAMINE. [Suspect]
     Active Substance: KETOROLAC TROMETHAMINE
     Dosage: UNK
     Route: 065
  16. INSULIN [Concomitant]
     Active Substance: INSULIN NOS
     Dosage: UNK, 2X/DAY
     Route: 065

REACTIONS (35)
  - Eating disorder [Fatal]
  - Hepatic neoplasm [Recovered/Resolved]
  - Blood pressure increased [Recovered/Resolved]
  - Body temperature decreased [Recovered/Resolved]
  - Device occlusion [Recovered/Resolved]
  - Nausea [Recovered/Resolved]
  - Drug hypersensitivity [Fatal]
  - Vomiting [Fatal]
  - Biliary obstruction [Recovered/Resolved]
  - Jaundice [Recovered/Resolved]
  - Bronchitis [Recovered/Resolved]
  - Weight decreased [Recovered/Resolved]
  - Pain [Recovered/Resolved]
  - Chills [Recovered/Resolved]
  - Heart rate decreased [Recovered/Resolved]
  - Tremor [Recovered/Resolved]
  - Abdominal pain [Fatal]
  - Diabetes mellitus [Recovered/Resolved]
  - Ocular icterus [Recovered/Resolved]
  - Orthostatic hypotension [Recovered/Resolved]
  - Post procedural complication [Recovered/Resolved]
  - Blood glucose decreased [Recovered/Resolved]
  - Discomfort [Recovered/Resolved]
  - Needle issue [Recovered/Resolved]
  - Yellow skin [Recovered/Resolved]
  - Aspiration [Fatal]
  - Asthenia [Fatal]
  - General physical health deterioration [Fatal]
  - Blood pressure diastolic decreased [Recovered/Resolved]
  - Blood pressure fluctuation [Recovered/Resolved]
  - Malaise [Recovered/Resolved]
  - Diarrhoea [Fatal]
  - Blood pressure systolic increased [Recovered/Resolved]
  - Decreased appetite [Recovered/Resolved]
  - Incorrect dose administered [Recovered/Resolved]
